FAERS Safety Report 8346516-7 (Version None)
Quarter: 2012Q2

REPORT INFORMATION
  Report Type: 
  Country: None (occurrence: None)
  Receive Date: 20120509
  Receipt Date: 20120119
  Transmission Date: 20120825
  Serious: No
  Sender: FDA-Public Use
  Company Number: US-MYLANLABS-2011S1025294

PATIENT
  Age: 47 Year
  Sex: Female
  Weight: 58.97 kg

DRUGS (4)
  1. ANCEF /00288502/ [Concomitant]
     Route: 042
  2. MORPHINE SULFATE [Concomitant]
     Dosage: EVERY 2 HOURS
  3. RIMSO-50 [Suspect]
     Indication: CYSTITIS INTERSTITIAL
     Route: 042
     Dates: start: 20111206
  4. REGLAN [Concomitant]
     Dosage: EVERY 6 HOURS

REACTIONS (2)
  - NO ADVERSE EVENT [None]
  - INCORRECT ROUTE OF DRUG ADMINISTRATION [None]
